FAERS Safety Report 6279362-9 (Version None)
Quarter: 2009Q3

REPORT INFORMATION
  Report Type: 
  Country: None (occurrence: None)
  Receive Date: 20090723
  Receipt Date: 20090715
  Transmission Date: 20100115
  Serious: Yes (Other)
  Sender: FDA-Public Use
  Company Number: AU-B.I. PHARMACEUTICALS,INC./RIDGEFIELD-2009-AU-00345AU

PATIENT
  Sex: Male

DRUGS (1)
  1. CATAPRES [Suspect]
     Route: 042
     Dates: start: 20090107, end: 20090107

REACTIONS (2)
  - SYNCOPE [None]
  - TONIC CLONIC MOVEMENTS [None]
